FAERS Safety Report 5518373-5 (Version None)
Quarter: 2007Q4

REPORT INFORMATION
  Report Type: 
  Country: None (occurrence: None)
  Receive Date: 20071115
  Receipt Date: 20071112
  Transmission Date: 20080405
  Serious: Yes (Other)
  Sender: FDA-Public Use
  Company Number: US-SOLVAY-00207034156

PATIENT
  Sex: Female

DRUGS (1)
  1. ESTRATEST [Suspect]
     Indication: ILL-DEFINED DISORDER
     Dosage: DAILY DOSE: 1.25 MILLIGRAM(S)
     Route: 048
     Dates: start: 20060419, end: 20070330

REACTIONS (1)
  - BENIGN INTRACRANIAL HYPERTENSION [None]
